FAERS Safety Report 6271215-5 (Version None)
Quarter: 2009Q3

REPORT INFORMATION
  Report Type: 
  Country: None (occurrence: None)
  Receive Date: 20090717
  Receipt Date: 20080523
  Transmission Date: 20100115
  Serious: Yes (Other)
  Sender: FDA-Public Use
  Company Number: US-ASTRAZENECA-2006UW22845

PATIENT
  Age: 39 Year
  Sex: Male
  Weight: 142.9 kg

DRUGS (31)
  1. SEROQUEL [Suspect]
     Indication: DEPRESSION
     Route: 048
     Dates: start: 20040101
  2. SEROQUEL [Suspect]
     Indication: BIPOLAR DISORDER
     Route: 048
     Dates: start: 20040101
  3. SEROQUEL [Suspect]
     Dosage: DOSE 100 MG TO 300 MG
     Route: 048
     Dates: start: 20040428
  4. SEROQUEL [Suspect]
     Dosage: DOSE 100 MG TO 300 MG
     Route: 048
     Dates: start: 20040428
  5. ABILIFY [Concomitant]
     Dates: start: 20010101
  6. CLOZARIL [Concomitant]
     Dates: start: 20010101
  7. HALDOL [Concomitant]
     Dates: start: 20060101
  8. RISPERDAL [Concomitant]
     Dates: start: 20010101
  9. ZYPREXA [Concomitant]
     Dates: start: 20010101
  10. VICODIN [Concomitant]
     Indication: HEADACHE
     Dosage: DOSE ONE OR TWO EVERY SIX HOURS AS REQUIRED, STRENGTH 7.5/650, 7.5/750, 5/500.
  11. LOPRESSOR [Concomitant]
     Route: 048
  12. VASOTEC [Concomitant]
     Dosage: STRENGTH-  10MG, 20MG  DOSE-  10MG DAILY
     Route: 048
  13. EFFEXOR [Concomitant]
     Dosage: 150-300 MG DAILY
     Route: 048
  14. ASPIRIN [Concomitant]
  15. LIPITOR [Concomitant]
     Dosage: DOSE 10 TO 20 MG, STRENGTH 40 MG.
     Route: 048
  16. TRICOR [Concomitant]
     Dosage: DOSE 160 MG DAILY, STRENGTH 145 MG.
  17. ATIVAN [Concomitant]
     Dosage: STRENGTH-  0.5MG, 1MG  DOSE-  1MG EVERY 12 HOUR AS REQUIRED.
  18. PREVACID [Concomitant]
     Route: 048
  19. AMOXICILLIN [Concomitant]
  20. FLEXERIL [Concomitant]
     Route: 048
  21. OMNICEF [Concomitant]
  22. PHENERGAN W/ CODEINE [Concomitant]
     Dosage: 1 TO 2 EVERY 6 HOUR
     Route: 048
  23. ULTRAM [Concomitant]
     Dosage: DOSE 50MG-100MG EVERY 6 HOURS AS REQUIRED.
  24. NEURONTIN [Concomitant]
     Route: 048
  25. PROTONIX [Concomitant]
  26. FOLIC ACID [Concomitant]
  27. ZOLOFT [Concomitant]
  28. HYDROCHLOROTHIAZIDE [Concomitant]
  29. LEVAQUIN [Concomitant]
     Indication: URINARY TRACT INFECTION
     Route: 048
  30. DARVOCET [Concomitant]
     Dosage: STRENGTH-  100MG/650 MG
  31. STRATTERA [Concomitant]
     Dosage: DOSE 40 MG 1 DAILY FOR 7 DAYS THEN 2 TIMES A DAY
     Route: 048

REACTIONS (6)
  - DIABETES MELLITUS [None]
  - DIABETIC KETOACIDOSIS [None]
  - MENTAL DISORDER [None]
  - NEUROPATHY PERIPHERAL [None]
  - PANCREATITIS [None]
  - TYPE 2 DIABETES MELLITUS [None]
